FAERS Safety Report 12884655 (Version 1)
Quarter: 2016Q4

REPORT INFORMATION
  Report Type: Report from Study
  Country: US (occurrence: US)
  Receive Date: 20161026
  Receipt Date: 20161026
  Transmission Date: 20170207
  Serious: Yes (Other)
  Sender: FDA-Public Use
  Company Number: US-GILEAD-2016-0231158

PATIENT
  Age: 64 Year
  Sex: Male

DRUGS (4)
  1. AMBRISENTAN [Suspect]
     Active Substance: AMBRISENTAN
     Indication: PRODUCT USED FOR UNKNOWN INDICATION
     Dosage: 10 MG, QD
     Route: 065
     Dates: start: 20160810
  2. ADCIRCA [Concomitant]
     Active Substance: TADALAFIL
  3. ADEMPAS [Suspect]
     Active Substance: RIOCIGUAT
     Indication: PRODUCT USED FOR UNKNOWN INDICATION
     Route: 065
  4. COUMADIN [Concomitant]
     Active Substance: WARFARIN SODIUM

REACTIONS (11)
  - Hypoaesthesia [Unknown]
  - Exercise tolerance decreased [Unknown]
  - Arthralgia [Unknown]
  - Headache [Unknown]
  - Walking distance test abnormal [Unknown]
  - Ulcer [Unknown]
  - Dizziness [Unknown]
  - Scleroderma [Unknown]
  - Cough [Unknown]
  - Peripheral swelling [Unknown]
  - Fatigue [Unknown]
